FAERS Safety Report 5318818-X (Version None)
Quarter: 2007Q2

REPORT INFORMATION
  Report Type: 
  Country: None (occurrence: None)
  Receive Date: 20070504
  Receipt Date: 20070504
  Transmission Date: 20071010
  Serious: No
  Sender: FDA-Public Use
  Company Number: None

PATIENT
  Age: 49 Year
  Sex: Female
  Weight: 72.5755 kg

DRUGS (8)
  1. EFFEXOR XR [Suspect]
     Indication: DEPRESSION
     Dosage: 37.5 MG  DAILY  PO
     Route: 048
  2. LEXVOXYL [Concomitant]
  3. AVALIDE [Concomitant]
  4. IBUPROFEN [Concomitant]
  5. MULTI-VITAMIN [Concomitant]
  6. MAGNESIUM SULFATE [Concomitant]
  7. ECOTRIN [Concomitant]
  8. OSCAL D [Concomitant]

REACTIONS (1)
  - VERTIGO [None]
